FAERS Safety Report 7960597-1 (Version None)
Quarter: 2011Q4

REPORT INFORMATION
  Report Type: 
  Country: None (occurrence: None)
  Receive Date: 20111206
  Receipt Date: 20111129
  Transmission Date: 20120403
  Serious: No
  Sender: FDA-Public Use
  Company Number: US-B.I. PHARMACEUTICALS,INC./RIDGEFIELD-2011-BP-27040BP

PATIENT
  Age: 83 Year
  Sex: Female

DRUGS (4)
  1. PRADAXA [Suspect]
     Indication: ATRIAL FIBRILLATION
     Dosage: 300 MG
     Route: 048
     Dates: start: 20111017
  2. LIPITOR [Concomitant]
     Indication: BLOOD CHOLESTEROL INCREASED
     Route: 048
  3. SYNTHROID [Concomitant]
     Indication: HYPOTHYROIDISM
     Route: 048
  4. DIOVAN [Concomitant]
     Indication: HYPERTENSION
     Route: 048

REACTIONS (5)
  - VISUAL IMPAIRMENT [None]
  - RASH [None]
  - VISION BLURRED [None]
  - BLINDNESS TRANSIENT [None]
  - PRURITUS [None]
